FAERS Safety Report 4824525-X (Version None)
Quarter: 2005Q4

REPORT INFORMATION
  Report Type: 
  Country: None (occurrence: None)
  Receive Date: 20051108
  Receipt Date: 20051020
  Transmission Date: 20060501
  Serious: Yes (Other)
  Sender: FDA-Public Use
  Company Number: EWC051046830

PATIENT
  Age: 78 Year
  Sex: Male

DRUGS (3)
  1. XIGRIS [Suspect]
     Indication: PNEUMONIA
     Dosage: 24 UG/KG/HR
     Dates: start: 20051019, end: 20051020
  2. XIGRIS [Suspect]
     Indication: SEPTIC SHOCK
     Dosage: 24 UG/KG/HR
     Dates: start: 20051019, end: 20051020
  3. HEPARIN [Concomitant]

REACTIONS (1)
  - THROMBOCYTOPENIA [None]
